FAERS Safety Report 8802413 (Version 1)
Quarter: 2012Q4

REPORT INFORMATION
  Report Type: 
  Country: US (occurrence: US)
  Receive Date: 20120921
  Receipt Date: 20120921
  Transmission Date: 20130627
  Serious: No
  Sender: FDA-Public Use
  Company Number: US-PFIZER INC-2012233948

PATIENT
  Age: 63 Year
  Sex: Male
  Weight: 79 kg

DRUGS (3)
  1. EFFEXOR [Suspect]
     Indication: DEPRESSION
     Dosage: 75 mg, 1x/day
     Route: 048
     Dates: end: 201112
  2. EFFEXOR [Suspect]
     Indication: SOCIAL PHOBIA
  3. PRISTIQ [Suspect]
     Dosage: 50 mg, 1x/day
     Route: 048
     Dates: start: 201209

REACTIONS (4)
  - Feeling abnormal [Unknown]
  - Confusional state [Unknown]
  - Drug intolerance [Unknown]
  - Drug hypersensitivity [Unknown]
